FAERS Safety Report 21663688 (Version 1)
Quarter: 2022Q4

REPORT INFORMATION
  Report Type: Report from Study
  Country: BR (occurrence: BR)
  Receive Date: 20221130
  Receipt Date: 20221130
  Transmission Date: 20230113
  Serious: Yes (Other)
  Sender: FDA-Public Use
  Company Number: BR-JNJFOC-20221155191

PATIENT
  Sex: Male
  Weight: 84 kg

DRUGS (2)
  1. INFLIXIMAB [Suspect]
     Active Substance: INFLIXIMAB
     Indication: Crohn^s disease
     Route: 041
     Dates: start: 20170921
  2. COVID-19 VACCINE [Concomitant]

REACTIONS (3)
  - Immunosuppression [Unknown]
  - White blood cell analysis abnormal [Unknown]
  - Influenza [Unknown]
